FAERS Safety Report 4519065-1 (Version None)
Quarter: 2004Q4

REPORT INFORMATION
  Report Type: 
  Country: None (occurrence: None)
  Receive Date: 20041201
  Receipt Date: 20041125
  Transmission Date: 20050328
  Serious: Yes (Life-Threatening)
  Sender: FDA-Public Use
  Company Number: 200410848BCA

PATIENT
  Age: 75 Year
  Sex: Female

DRUGS (15)
  1. MOXIFLOXACIN INJECTION (MOXIFLOXACIN) [Suspect]
     Indication: SEPSIS
     Dosage: 400 MG, TOTAL DAILY, INTRAVENOUS
     Route: 042
     Dates: start: 20041001
  2. DOPAMINE HCL [Concomitant]
  3. NA BICARBONATE [Concomitant]
  4. COUMADIN [Concomitant]
  5. VASOTEC [Concomitant]
  6. CYTOTEC [Concomitant]
  7. CALCIUM CARBONATE [Concomitant]
  8. VITAMIN B-12 [Concomitant]
  9. PERIDEX [Concomitant]
  10. CLARITIN [Concomitant]
  11. LOVENOX [Concomitant]
  12. DITROPAN XL [Concomitant]
  13. PROPRANOLOL [Concomitant]
  14. RED BLOOD CELLS [Concomitant]
  15. FRESH FROZEN PLASMA [Concomitant]

REACTIONS (7)
  - ABDOMINAL COMPARTMENT SYNDROME [None]
  - COLITIS ISCHAEMIC [None]
  - HAEMOLYSIS [None]
  - HYPOTENSION [None]
  - INTESTINAL INFARCTION [None]
  - REFUSAL OF TREATMENT BY RELATIVE [None]
  - THERAPY NON-RESPONDER [None]
